FAERS Safety Report 8000196-9 (Version None)
Quarter: 2011Q4

REPORT INFORMATION
  Report Type: 
  Country: None (occurrence: None)
  Receive Date: 20111220
  Receipt Date: 20111220
  Transmission Date: 20120403
  Serious: Yes (Hospitalization)
  Sender: FDA-Public Use
  Company Number: None

PATIENT
  Age: 74 Year
  Sex: Female
  Weight: 53.5 kg

DRUGS (8)
  1. DECITABINE [Suspect]
     Indication: MYELODYSPLASTIC SYNDROME
     Dosage: DECITABINE 5.35 MG SQ
     Route: 058
  2. MIDODRINE HYDROCHLORIDE [Concomitant]
  3. XANAX [Concomitant]
  4. SYNTHROID [Concomitant]
  5. LIPITOR [Concomitant]
  6. FLUDROCORTISONE ACETATE [Concomitant]
  7. DECITABINE [Suspect]
  8. POTASSIUM CHLORIDE [Concomitant]

REACTIONS (6)
  - ANEURYSM [None]
  - HYPERTENSION [None]
  - AGGRESSION [None]
  - INCOHERENT [None]
  - OCULAR VASCULAR DISORDER [None]
  - WHITE BLOOD CELL COUNT DECREASED [None]
